FAERS Safety Report 5122155-6 (Version None)
Quarter: 2006Q4

REPORT INFORMATION
  Report Type: 
  Country: None (occurrence: None)
  Receive Date: 20061004
  Receipt Date: 20061004
  Transmission Date: 20070319
  Serious: Yes (Other)
  Sender: FDA-Public Use
  Company Number: None

PATIENT
  Age: 50 Year
  Sex: Male
  Weight: 75.7507 kg

DRUGS (1)
  1. ENBREL [Suspect]
     Indication: PSORIASIS
     Dosage: 50 ML WEEKLY SQ
     Route: 058
     Dates: start: 20050106, end: 20060804

REACTIONS (9)
  - INFECTION [None]
  - MOUTH ULCERATION [None]
  - PHARYNGOLARYNGEAL PAIN [None]
  - PYREXIA [None]
  - RHINITIS [None]
  - SCAB [None]
  - SKIN ULCER [None]
  - STOMATITIS [None]
  - UPPER RESPIRATORY TRACT INFECTION [None]
